FAERS Safety Report 4726918-8 (Version None)
Quarter: 2005Q3

REPORT INFORMATION
  Report Type: 
  Country: None (occurrence: None)
  Receive Date: 20050725
  Receipt Date: 20050725
  Transmission Date: 20060218
  Serious: Yes (Other)
  Sender: FDA-Public Use
  Company Number: None

PATIENT
  Age: 34 Year
  Sex: Male
  Weight: 86 kg

DRUGS (1)
  1. OMEPRAZOLE [Suspect]
     Indication: GASTRITIS
     Dosage: 20MG DAILY
     Dates: start: 20050708, end: 20050720

REACTIONS (3)
  - CHEST PAIN [None]
  - PALPITATIONS [None]
  - PARAESTHESIA [None]
